FAERS Safety Report 26023485 (Version 1)
Quarter: 2025Q4

REPORT INFORMATION
  Report Type: Spontaneous
  Country: US (occurrence: US)
  Receive Date: 20251111
  Receipt Date: 20251111
  Transmission Date: 20260117
  Serious: No
  Sender: VIIV
  Company Number: US-VIIV HEALTHCARE-US2025AMR144711

PATIENT
  Sex: Male

DRUGS (1)
  1. DOVATO [Suspect]
     Active Substance: DOLUTEGRAVIR SODIUM\LAMIVUDINE
     Indication: HIV infection
     Dosage: 1 DF, QD 50MG/300MG
     Dates: start: 20221025

REACTIONS (3)
  - Anxiety [Unknown]
  - Exostosis [Not Recovered/Not Resolved]
  - Cyst [Not Recovered/Not Resolved]
